FAERS Safety Report 11641095 (Version 1)
Quarter: 2015Q4

REPORT INFORMATION
  Report Type: Spontaneous
  Country: US (occurrence: US)
  Receive Date: 20151019
  Receipt Date: 20151019
  Transmission Date: 20160304
  Serious: No
  Sender: FDA-Public Use
  Company Number: US-ENDO PHARMACEUTICALS INC.-2015-001241

PATIENT
  Age: 55 Year
  Sex: Male
  Weight: 108.96 kg

DRUGS (1)
  1. AMITRIPTYLINE HCL [Suspect]
     Active Substance: AMITRIPTYLINE
     Indication: TINNITUS
     Route: 065

REACTIONS (1)
  - Product use issue [Unknown]
